FAERS Safety Report 11141859 (Version 1)
Quarter: 2015Q2

REPORT INFORMATION
  Report Type: Spontaneous
  Country: US (occurrence: US)
  Receive Date: 20150527
  Receipt Date: 20150527
  Transmission Date: 20150821
  Serious: Yes (Other)
  Sender: FDA-Public Use
  Company Number: US-GLAXOSMITHKLINE-US2015GSK071128

PATIENT
  Age: 57 Year
  Sex: Female

DRUGS (1)
  1. ALLI [Suspect]
     Active Substance: ORLISTAT
     Indication: PRODUCT USED FOR UNKNOWN INDICATION
     Dosage: 60 MG 3X^S D
     Route: 048

REACTIONS (12)
  - Nausea [Unknown]
  - Night sweats [Unknown]
  - Pruritus [Unknown]
  - Abnormal faeces [Unknown]
  - Diarrhoea [Unknown]
  - Lethargy [Unknown]
  - Aphagia [Unknown]
  - Malaise [Unknown]
  - Back pain [Unknown]
  - Weight decreased [Unknown]
  - Pain [Unknown]
  - Activities of daily living impaired [Unknown]
